FAERS Safety Report 12820359 (Version 3)
Quarter: 2017Q1

REPORT INFORMATION
  Report Type: Report from Study
  Country: US (occurrence: US)
  Receive Date: 20161006
  Receipt Date: 20170327
  Transmission Date: 20170428
  Serious: Yes (Death, Other)
  Sender: FDA-Public Use
  Company Number: US-JNJFOC-20161003997

PATIENT
  Age: 67 Year
  Sex: Male

DRUGS (2)
  1. IBRUTINIB [Suspect]
     Active Substance: IBRUTINIB
     Indication: MANTLE CELL LYMPHOMA
     Route: 048
     Dates: start: 20160803
  2. CARFILZOMIB [Suspect]
     Active Substance: CARFILZOMIB
     Indication: MANTLE CELL LYMPHOMA
     Dates: start: 20160803

REACTIONS (2)
  - Dyspnoea [Fatal]
  - Sepsis [Fatal]

NARRATIVE: CASE EVENT DATE: 20160928
